FAERS Safety Report 5493757-2 (Version None)
Quarter: 2007Q4

REPORT INFORMATION
  Report Type: 
  Country: None (occurrence: None)
  Receive Date: 20071023
  Receipt Date: 20071016
  Transmission Date: 20080405
  Serious: Yes (Hospitalization)
  Sender: FDA-Public Use
  Company Number: ES-ROXANE LABORATORIES, INC-2007-BP-22765RO

PATIENT
  Age: 18 Year
  Sex: Male

DRUGS (11)
  1. AZATHIOPRINE [Suspect]
     Indication: IMMUNOSUPPRESSION
  2. PREDNISONE [Suspect]
     Indication: IMMUNOSUPPRESSION
  3. TACROLIMUS [Suspect]
     Indication: IMMUNOSUPPRESSION
  4. VORICONAZOLE [Concomitant]
     Indication: FUNGUS SPUTUM TEST POSITIVE
  5. RIFAMPIN [Concomitant]
     Indication: TUBERCULOSIS
  6. ISONIAZID [Concomitant]
     Indication: TUBERCULOSIS
  7. ETHAMBUTOL HCL [Concomitant]
     Indication: TUBERCULOSIS
  8. PYRAZINAMIDE [Concomitant]
     Indication: TUBERCULOSIS
  9. LINEZOLID [Concomitant]
     Indication: MYCOBACTERIUM ABSCESSUS INFECTION
     Route: 048
  10. CIPROFLOXACIN [Concomitant]
     Indication: MYCOBACTERIUM ABSCESSUS INFECTION
     Route: 048
  11. CLARITHROMYCIN [Concomitant]
     Indication: MYCOBACTERIUM ABSCESSUS INFECTION

REACTIONS (3)
  - MYCOBACTERIUM ABSCESSUS INFECTION [None]
  - PANCYTOPENIA [None]
  - SEPSIS [None]
